FAERS Safety Report 8124652-8 (Version None)
Quarter: 2012Q1

REPORT INFORMATION
  Report Type: 
  Country: None (occurrence: None)
  Receive Date: 20120209
  Receipt Date: 20120209
  Transmission Date: 20120608
  Serious: No
  Sender: FDA-Public Use
  Company Number: None

PATIENT
  Age: 30 Year
  Sex: Female
  Weight: 65.77 kg

DRUGS (2)
  1. LEVOFLOXACIN [Suspect]
     Indication: CHRONIC SINUSITIS
     Dosage: 1 TABLET
     Route: 048
     Dates: start: 20120201, end: 20120203
  2. PREDNISOLONE [Concomitant]
     Dosage: 2 TABLETS
     Route: 048
     Dates: start: 20120201, end: 20120203

REACTIONS (5)
  - ARTHRALGIA [None]
  - TENDON PAIN [None]
  - MYALGIA [None]
  - PAIN IN EXTREMITY [None]
  - PARAESTHESIA [None]
